FAERS Safety Report 9374097 (Version 2)
Quarter: 2013Q3

REPORT INFORMATION
  Report Type: Spontaneous
  Country: US (occurrence: US)
  Receive Date: 20130628
  Receipt Date: 20130809
  Transmission Date: 20140515
  Serious: Yes (Hospitalization)
  Sender: FDA-Public Use
  Company Number: US-BIOGENIDEC-2013BI056785

PATIENT
  Sex: Female

DRUGS (4)
  1. AVONEX [Suspect]
     Indication: PRODUCT USED FOR UNKNOWN INDICATION
     Route: 030
  2. FLAGYL [Concomitant]
  3. CIPROFLAXACIN HCL [Concomitant]
  4. FORTEO [Concomitant]

REACTIONS (1)
  - Colitis [Unknown]
